FAERS Safety Report 5478328-6 (Version None)
Quarter: 2007Q4

REPORT INFORMATION
  Report Type: 
  Country: None (occurrence: None)
  Receive Date: 20071005
  Receipt Date: 20071002
  Transmission Date: 20080405
  Serious: Yes (Life-Threatening)
  Sender: FDA-Public Use
  Company Number: FR-BRISTOL-MYERS SQUIBB COMPANY-13805437

PATIENT
  Age: 71 Year
  Sex: Female

DRUGS (9)
  1. DAFALGAN [Suspect]
     Indication: PAIN IN EXTREMITY
  2. PRAVADUAL TABS [Suspect]
     Indication: CARDIAC DISORDER
     Route: 048
     Dates: end: 20070416
  3. PRAVADUAL TABS [Suspect]
     Indication: HYPERTENSION
     Route: 048
     Dates: end: 20070416
  4. PREVISCAN [Suspect]
     Indication: CARDIAC DISORDER
     Route: 048
     Dates: end: 20070416
  5. PREVISCAN [Suspect]
     Indication: HYPERTENSION
     Route: 048
     Dates: end: 20070416
  6. TENORMIN [Suspect]
     Route: 048
     Dates: end: 20070416
  7. AUGMENTIN '125' [Suspect]
     Indication: VARICOSE ULCERATION
     Route: 048
     Dates: start: 20070412, end: 20070416
  8. NUREFLEX [Suspect]
     Indication: PAIN IN EXTREMITY
     Route: 048
  9. LAMALINE [Concomitant]

REACTIONS (1)
  - HAEMATOMA [None]
